FAERS Safety Report 15617687 (Version 1)
Quarter: 2018Q4

REPORT INFORMATION
  Report Type: Spontaneous
  Country: FR (occurrence: FR)
  Receive Date: 20181114
  Receipt Date: 20181114
  Transmission Date: 20190205
  Serious: Yes (Hospitalization)
  Sender: FDA-Public Use
  Company Number: PHHY2018FR154529

PATIENT
  Age: 43 Year
  Sex: Female

DRUGS (27)
  1. TRANDATE [Concomitant]
     Active Substance: LABETALOL HYDROCHLORIDE
     Dosage: 800 MG, QD
     Route: 065
     Dates: start: 20180802
  2. ADVAGRAF [Concomitant]
     Active Substance: TACROLIMUS
     Indication: RENAL TRANSPLANT
     Dosage: 15 MG, QD
     Route: 065
     Dates: start: 20180508
  3. ENVARSUS XR [Suspect]
     Active Substance: TACROLIMUS
     Dosage: 14 MG, QD
     Route: 048
     Dates: start: 20180812, end: 20180915
  4. CALCIPARINE [Concomitant]
     Active Substance: HEPARIN CALCIUM
     Indication: CARDIOVASCULAR EVENT PROPHYLAXIS
     Dosage: 1.2 ML, QD
     Route: 058
     Dates: start: 20180812
  5. ADVAGRAF [Concomitant]
     Active Substance: TACROLIMUS
     Dosage: 15 MG, QD
     Route: 065
     Dates: start: 20180713
  6. PROGRAF [Concomitant]
     Active Substance: TACROLIMUS\TACROLIMUS ANHYDROUS
     Dosage: 14 MG, QD
     Route: 065
     Dates: start: 20180507
  7. LASILIX [Concomitant]
     Active Substance: FUROSEMIDE
     Indication: SODIUM RETENTION
     Dosage: 60 MG, QD
     Route: 065
     Dates: start: 20180529
  8. SODIUM BICARBONATE. [Concomitant]
     Active Substance: SODIUM BICARBONATE
     Indication: METABOLIC ACIDOSIS
     Dosage: 2 G, QD
     Route: 065
     Dates: start: 20180925
  9. ARANESP [Concomitant]
     Active Substance: DARBEPOETIN ALFA
     Indication: ANAEMIA
     Dosage: 80 UG, Q2W
     Route: 065
  10. MYFORTIC [Suspect]
     Active Substance: MYCOPHENOLATE SODIUM
     Dosage: 1440 MG, QD
     Route: 065
     Dates: start: 20180925
  11. ENVARSUS XR [Suspect]
     Active Substance: TACROLIMUS
     Indication: PROPHYLAXIS AGAINST TRANSPLANT REJECTION
     Dosage: 16 MG, QD
     Route: 048
     Dates: start: 20180714, end: 20180811
  12. COUMADINE [Concomitant]
     Active Substance: WARFARIN SODIUM
     Indication: CARDIOVASCULAR EVENT PROPHYLAXIS
     Dosage: 7.5 MG, QD
     Route: 065
     Dates: start: 20180508
  13. COUMADINE [Concomitant]
     Active Substance: WARFARIN SODIUM
     Dosage: 8.5 MG, QD
     Route: 065
     Dates: start: 20180825
  14. PROGRAF [Concomitant]
     Active Substance: TACROLIMUS\TACROLIMUS ANHYDROUS
     Indication: PROPHYLAXIS AGAINST TRANSPLANT REJECTION
     Dosage: 10 MG, QD
     Route: 065
     Dates: start: 20180416, end: 20180417
  15. PROGRAF [Concomitant]
     Active Substance: TACROLIMUS\TACROLIMUS ANHYDROUS
     Dosage: 14 MG, QD
     Route: 065
     Dates: start: 20180424
  16. BACTRIM [Concomitant]
     Active Substance: SULFAMETHOXAZOLE\TRIMETHOPRIM
     Dosage: 400 MG, QD
     Route: 065
     Dates: start: 20180810
  17. MYFORTIC [Suspect]
     Active Substance: MYCOPHENOLATE SODIUM
     Indication: RENAL TRANSPLANT
     Dosage: 1440 MG, QD
     Route: 065
     Dates: start: 20180416
  18. SODIUM BICARBONATE. [Concomitant]
     Active Substance: SODIUM BICARBONATE
     Dosage: 4 G, QD
     Route: 065
     Dates: start: 20180825, end: 20180924
  19. UVEDOSE [Concomitant]
     Active Substance: CHOLECALCIFEROL
     Indication: VITAMIN D DEFICIENCY
     Dosage: 100000 IU, QMO
     Route: 065
  20. CALCIPARINE [Concomitant]
     Active Substance: HEPARIN CALCIUM
     Dosage: 1.2 ML, QD
     Route: 058
     Dates: start: 20180924
  21. MYFORTIC [Suspect]
     Active Substance: MYCOPHENOLATE SODIUM
     Dosage: UNK
     Route: 065
  22. TRANDATE [Concomitant]
     Active Substance: LABETALOL HYDROCHLORIDE
     Indication: HYPERTENSION
     Dosage: 400 MG, QD
     Route: 065
     Dates: start: 20180612, end: 20180801
  23. PROGRAF [Concomitant]
     Active Substance: TACROLIMUS\TACROLIMUS ANHYDROUS
     Dosage: 20 MG, QD
     Route: 065
     Dates: start: 20180418, end: 20180419
  24. PROGRAF [Concomitant]
     Active Substance: TACROLIMUS\TACROLIMUS ANHYDROUS
     Dosage: 18 MG, QD
     Route: 065
     Dates: start: 20180420, end: 20180423
  25. LASILIX [Concomitant]
     Active Substance: FUROSEMIDE
     Dosage: 60 MG, QD
     Route: 065
     Dates: start: 20180811
  26. BACTRIM [Concomitant]
     Active Substance: SULFAMETHOXAZOLE\TRIMETHOPRIM
     Indication: ANTIFUNGAL PROPHYLAXIS
     Dosage: 400 MG, QD
     Route: 065
     Dates: start: 20180516
  27. CORTANCYL [Concomitant]
     Active Substance: PREDNISONE
     Indication: RENAL TRANSPLANT
     Dosage: 2.5 MG, QD
     Route: 065
     Dates: start: 20180421

REACTIONS (3)
  - Acute kidney injury [Recovered/Resolved]
  - Thrombotic microangiopathy [Recovered/Resolved]
  - Diarrhoea [Recovered/Resolved]

NARRATIVE: CASE EVENT DATE: 20180801
